FAERS Safety Report 12118864 (Version 1)
Quarter: 2016Q1

REPORT INFORMATION
  Report Type: Spontaneous
  Country: ES (occurrence: ES)
  Receive Date: 20160226
  Receipt Date: 20160226
  Transmission Date: 20160526
  Serious: Yes (Other)
  Sender: FDA-Public Use
  Company Number: ES-ASTRAZENECA-2016SE18068

PATIENT
  Age: 65 Year
  Sex: Female

DRUGS (7)
  1. CARDYL [Concomitant]
     Active Substance: ATORVASTATIN CALCIUM
     Dosage: 40
  2. OMEPRAZOL [Concomitant]
     Active Substance: OMEPRAZOLE
  3. LACEROL [Concomitant]
  4. BYDUREON [Suspect]
     Active Substance: EXENATIDE
     Indication: TYPE 2 DIABETES MELLITUS
     Route: 058
     Dates: start: 20150520, end: 20150620
  5. SUTRIL [Concomitant]
     Active Substance: TORSEMIDE
  6. APROVEL [Concomitant]
     Active Substance: IRBESARTAN
  7. SINTROM [Concomitant]
     Active Substance: ACENOCOUMAROL
     Indication: ATRIAL FIBRILLATION

REACTIONS (1)
  - Depression [Recovered/Resolved]

NARRATIVE: CASE EVENT DATE: 20150520
